FAERS Safety Report 10420002 (Version 1)
Quarter: 2014Q3

REPORT INFORMATION
  Report Type: Spontaneous
  Country: CN (occurrence: CN)
  Receive Date: 20140829
  Receipt Date: 20140829
  Transmission Date: 20150326
  Serious: Yes (Other)
  Sender: FDA-Public Use
  Company Number: CN-BAXTER-2014BAX050426

PATIENT
  Age: 60 Year
  Sex: Male
  Weight: 55 kg

DRUGS (4)
  1. RIBONUCLEIC ACID II [Suspect]
     Active Substance: RIBONUCLEIC ACID
     Indication: HEPATIC CANCER
     Route: 041
     Dates: start: 20140311, end: 20140311
  2. 0.9% SODIUM CHLORIDE INJECTION [Suspect]
     Active Substance: SODIUM CHLORIDE
     Indication: HEPATIC CANCER
     Route: 065
     Dates: start: 20140311
  3. 0.9% SODIUM CHLORIDE INJECTION [Suspect]
     Active Substance: SODIUM CHLORIDE
     Indication: OFF LABEL USE
  4. MEDIUM AND LONG CHAIN FAT EMULSION INJECTION (C8-24) 20% [Suspect]
     Active Substance: GLYCERIN\MEDIUM-CHAIN TRIGLYCERIDES\PHOSPHOLIPID\SOYBEAN OIL
     Indication: NUTRITIONAL SUPPLEMENTATION
     Route: 041
     Dates: start: 20140311, end: 20140311

REACTIONS (3)
  - Chills [Recovered/Resolved]
  - Anaphylactic shock [Recovered/Resolved]
  - Pyrexia [Recovered/Resolved]

NARRATIVE: CASE EVENT DATE: 20140311
